FAERS Safety Report 6898629-4 (Version None)
Quarter: 2010Q3

REPORT INFORMATION
  Report Type: 
  Country: None (occurrence: None)
  Receive Date: 20100802
  Receipt Date: 20071108
  Transmission Date: 20110219
  Serious: Yes (Other)
  Sender: FDA-Public Use
  Company Number: US-PFIZER INC-2007075836

PATIENT
  Sex: Female
  Weight: 102.1 kg

DRUGS (16)
  1. LYRICA [Suspect]
     Indication: NEUROPATHY PERIPHERAL
     Route: 048
     Dates: start: 20050316
  2. TRILEPTAL [Suspect]
     Dates: start: 20070801, end: 20071001
  3. CYMBALTA [Concomitant]
     Dates: end: 20061001
  4. VYTORIN [Concomitant]
  5. VITAMIN B-12 [Concomitant]
  6. PREMARIN [Concomitant]
  7. NEXIUM [Concomitant]
     Indication: GASTROOESOPHAGEAL REFLUX DISEASE
  8. SYNTHROID [Concomitant]
     Indication: HYPOTHYROIDISM
  9. AMBIEN [Concomitant]
  10. FOLIC ACID [Concomitant]
  11. CALTRATE [Concomitant]
  12. CENTRUM [Concomitant]
  13. ULTRAM [Concomitant]
     Dates: start: 20070501
  14. VITAMIN B12 FOR INJECTION [Concomitant]
  15. NEURONTIN [Concomitant]
     Dates: end: 20050101
  16. VITAMIN B COMPLEX CAP [Concomitant]

REACTIONS (3)
  - RASH [None]
  - VISION BLURRED [None]
  - VISUAL IMPAIRMENT [None]
